FAERS Safety Report 6928324-4 (Version None)
Quarter: 2010Q3

REPORT INFORMATION
  Report Type: 
  Country: None (occurrence: None)
  Receive Date: 20100817
  Receipt Date: 20100809
  Transmission Date: 20110219
  Serious: Yes (Death, Other)
  Sender: FDA-Public Use
  Company Number: US-ROCHE-720891

PATIENT
  Sex: Female

DRUGS (1)
  1. BONIVA [Suspect]
     Indication: PRODUCT USED FOR UNKNOWN INDICATION
     Route: 065
     Dates: start: 20090513

REACTIONS (5)
  - ARTHRALGIA [None]
  - DEATH [None]
  - HEADACHE [None]
  - NEOPLASM MALIGNANT [None]
  - PAIN [None]
